FAERS Safety Report 8262428-1 (Version None)
Quarter: 2012Q2

REPORT INFORMATION
  Report Type: 
  Country: None (occurrence: None)
  Receive Date: 20120405
  Receipt Date: 20120327
  Transmission Date: 20120825
  Serious: Yes (Other)
  Sender: FDA-Public Use
  Company Number: CA-JNJFOC-20120313483

PATIENT
  Sex: Male
  Weight: 84 kg

DRUGS (3)
  1. METHOTREXATE [Concomitant]
     Route: 048
  2. REMICADE [Suspect]
     Indication: RHEUMATOID ARTHRITIS
     Route: 042
     Dates: start: 20020121
  3. ASPIRIN [Concomitant]
     Route: 048

REACTIONS (2)
  - TOOTH INJURY [None]
  - TOOTH INFECTION [None]
